FAERS Safety Report 15564856 (Version 1)
Quarter: 2018Q4

REPORT INFORMATION
  Report Type: Spontaneous
  Country: US (occurrence: US)
  Receive Date: 20181030
  Receipt Date: 20181030
  Transmission Date: 20190205
  Serious: No
  Sender: FDA-Public Use
  Company Number: None

PATIENT
  Age: 40 Year
  Sex: Female
  Weight: 76.5 kg

DRUGS (1)
  1. NATURE-THROID [Suspect]
     Active Substance: THYROID, PORCINE
     Indication: POST PROCEDURAL HYPOTHYROIDISM
     Dosage: ?          QUANTITY:1 TABLET(S);?
     Route: 048
     Dates: start: 20170801

REACTIONS (5)
  - Product formulation issue [None]
  - Drug effect decreased [None]
  - Product complaint [None]
  - Blood thyroid stimulating hormone increased [None]
  - Manufacturing materials issue [None]

NARRATIVE: CASE EVENT DATE: 20181029
